FAERS Safety Report 6920313-9 (Version None)
Quarter: 2010Q3

REPORT INFORMATION
  Report Type: 
  Country: None (occurrence: None)
  Receive Date: 20100809
  Receipt Date: 20100729
  Transmission Date: 20110219
  Serious: Yes (Hospitalization, Other)
  Sender: FDA-Public Use
  Company Number: 2010US003052

PATIENT
  Age: 45 Year
  Sex: Male
  Weight: 90 kg

DRUGS (11)
  1. PROGRAF [Suspect]
     Indication: LIVER TRANSPLANT
     Dosage: 1 MG, QID, ORAL
     Route: 048
     Dates: start: 19981213
  2. CELLCEPT [Concomitant]
  3. DIOVAN HCT [Concomitant]
  4. METOPROLOL SUCCINATE [Concomitant]
  5. LISINOPRIL [Concomitant]
  6. PHENTERMINE [Concomitant]
  7. INDOMETHACIN [Concomitant]
  8. ATIVAN [Concomitant]
  9. AMBIEN [Concomitant]
  10. ASPIRIN [Concomitant]
  11. BACTRIM [Concomitant]

REACTIONS (5)
  - CARDIAC OPERATION [None]
  - DIABETES MELLITUS [None]
  - FALL [None]
  - NECROSIS [None]
  - NUCLEAR MAGNETIC RESONANCE IMAGING BRAIN ABNORMAL [None]
